FAERS Safety Report 6889316-7 (Version None)
Quarter: 2010Q3

REPORT INFORMATION
  Report Type: 
  Country: None (occurrence: None)
  Receive Date: 20100730
  Receipt Date: 20080208
  Transmission Date: 20110219
  Serious: No
  Sender: FDA-Public Use
  Company Number: US-PFIZER INC-2008001493

PATIENT
  Sex: Female
  Weight: 55.4 kg

DRUGS (7)
  1. LIPITOR [Suspect]
     Indication: BLOOD CHOLESTEROL ABNORMAL
     Dates: start: 20031201, end: 20071023
  2. LIPITOR [Suspect]
     Indication: HYPERLIPIDAEMIA
  3. COREG [Suspect]
  4. PRAVASTATIN [Suspect]
     Dates: start: 20071203
  5. VASOTEC [Concomitant]
  6. NORVASC [Concomitant]
  7. VITAMINS [Concomitant]

REACTIONS (8)
  - BLOOD CHOLESTEROL INCREASED [None]
  - FATIGUE [None]
  - FEELING ABNORMAL [None]
  - MUSCLE FATIGUE [None]
  - MUSCULAR WEAKNESS [None]
  - MUSCULOSKELETAL PAIN [None]
  - MYALGIA [None]
  - OROPHARYNGEAL DISCOMFORT [None]
